FAERS Safety Report 7641478-X (Version None)
Quarter: 2011Q3

REPORT INFORMATION
  Report Type: 
  Country: None (occurrence: None)
  Receive Date: 20110722
  Receipt Date: 20110714
  Transmission Date: 20111222
  Serious: Yes (Disabling)
  Sender: FDA-Public Use
  Company Number: 1000022205

PATIENT
  Sex: Female
  Weight: 92.5 kg

DRUGS (23)
  1. MILK OF MAGNESIA (MAGNESIUM HYDROXIDE) (MAGNESIUM HYDROXIDE) [Concomitant]
  2. SKELAXIN (METAXALONE) (METAXALONE) [Concomitant]
  3. ALIGN PROBIOTIC (BIFIDOBACTERIM INFANTIS 35624) (BIFIDOBACTERIUM INFAN [Concomitant]
  4. LYRICA [Concomitant]
  5. PERCOCET (OXYCODONE, ACETAMINOPHEN) (OXYCODONE, ACETAMINOPHEN) [Concomitant]
  6. OXYCONTIN (OXYCODOE HYDROCHLORIDE) (OXYCODONE HYDROCHLORIDE) [Concomitant]
  7. DILAUDID (HYDROMORPHONE HYDROCLORIDE) (HYDROMORPHINE HYDROCHLORIDE) [Concomitant]
  8. NEXIUM [Concomitant]
  9. CELEXA [Concomitant]
  10. AMBIEN (ZOLPIDEM TARTRATE) (ZOLPIDEM TARTRATE)C [Concomitant]
  11. ESTROPIPATE (ESTROPIPATE) (ESTROPIPATE) [Concomitant]
  12. SAVELLA [Suspect]
     Indication: DEPRESSION
     Dosage: 50 MG (25 MG, 2 IN 1 D), ORAL
     Route: 048
     Dates: start: 20101028, end: 20101129
  13. METHOTREXATE [Concomitant]
  14. NITROGLYCERIN (GLYCERYL TRINITRATE) (CLYCERYL TRINITRATE) [Concomitant]
  15. VITAMIN C (ASCORBIC ACID) (ASCORBIC ACID) [Concomitant]
  16. KLOR-CON (POTASSIUM CHLORIDE) (POTASSIUM CHLORIDE) [Concomitant]
  17. IRON (IRON) (IRON) [Concomitant]
  18. FUROSEMIDE [Concomitant]
  19. ASPIRIN [Concomitant]
  20. KLONOPIN (CLONAZEPAM) (CLONAZEPAM) [Concomitant]
  21. ONDANSETRON [Concomitant]
  22. FOLIC ACID [Concomitant]
  23. LIPITOR (ATORVASTATIN CALCIUM) (ATROVASTATIN CALCIUM) [Concomitant]

REACTIONS (1)
  - TARDIVE DYSKINESIA [None]
